FAERS Safety Report 5239270-9 (Version None)
Quarter: 2007Q1

REPORT INFORMATION
  Report Type: 
  Country: None (occurrence: None)
  Receive Date: 20061208
  Receipt Date: 20050824
  Transmission Date: 20070707
  Serious: Yes (Other)
  Sender: FDA-Public Use
  Company Number: 2005UW12566

PATIENT
  Age: 54 Year
  Sex: Male
  Weight: 77.11 kg

DRUGS (2)
  1. CRESTOR [Suspect]
     Indication: BLOOD CHOLESTEROL INCREASED
     Dosage: 5 MG DAILY PO
     Route: 048
     Dates: start: 20050301
  2. ATIVAN [Concomitant]

REACTIONS (3)
  - CHROMATURIA [None]
  - DYSURIA [None]
  - MICTURITION URGENCY [None]
